FAERS Safety Report 7027684-6 (Version None)
Quarter: 2010Q4

REPORT INFORMATION
  Report Type: 
  Country: None (occurrence: None)
  Receive Date: 20101004
  Receipt Date: 20100925
  Transmission Date: 20110411
  Serious: Yes (Hospitalization)
  Sender: FDA-Public Use
  Company Number: US-AMGEN-KDL441570

PATIENT
  Sex: Female

DRUGS (1)
  1. ENBREL [Suspect]
     Route: 064
     Dates: start: 20070404, end: 20071101

REACTIONS (1)
  - PREMATURE BABY [None]
